FAERS Safety Report 7476860-7 (Version None)
Quarter: 2011Q2

REPORT INFORMATION
  Report Type: 
  Country: None (occurrence: None)
  Receive Date: 20110512
  Receipt Date: 20110503
  Transmission Date: 20111010
  Serious: Yes (Other)
  Sender: FDA-Public Use
  Company Number: PHHY2011US03020

PATIENT
  Sex: Male
  Weight: 88.45 kg

DRUGS (3)
  1. EXJADE [Suspect]
     Indication: IRON METABOLISM DISORDER
     Dosage: 2500 MG, QD
     Route: 048
     Dates: start: 20101217
  2. FINASTERIDE [Concomitant]
  3. UROTRAXAL [Concomitant]

REACTIONS (2)
  - ACUTE LEUKAEMIA [None]
  - DYSPEPSIA [None]
